FAERS Safety Report 16526605 (Version 1)
Quarter: 2019Q3

REPORT INFORMATION
  Report Type: Spontaneous
  Country: CN (occurrence: CN)
  Receive Date: 20190703
  Receipt Date: 20190703
  Transmission Date: 20191004
  Serious: Yes (Death, Hospitalization, Other)
  Sender: FDA-Public Use
  Company Number: CN-ASTRAZENECA-2019SE93993

PATIENT
  Age: 78 Year
  Sex: Male

DRUGS (3)
  1. GEFITINIB. [Suspect]
     Active Substance: GEFITINIB
     Indication: LUNG ADENOCARCINOMA
     Route: 048
     Dates: start: 20151023, end: 20170216
  2. OSIMERTINIB MESILATE [Suspect]
     Active Substance: OSIMERTINIB
     Indication: LUNG ADENOCARCINOMA
     Route: 048
     Dates: start: 201703
  3. EVEROLIMUS. [Concomitant]
     Active Substance: EVEROLIMUS
     Indication: LUNG ADENOCARCINOMA

REACTIONS (6)
  - Multiple organ dysfunction syndrome [Fatal]
  - Malignant neoplasm progression [Recovered/Resolved]
  - Intentional product misuse [Fatal]
  - Acquired gene mutation [Unknown]
  - Interstitial lung disease [Fatal]
  - Drug resistance [Unknown]

NARRATIVE: CASE EVENT DATE: 201607
